FAERS Safety Report 9174841 (Version 1)
Quarter: 2013Q1

REPORT INFORMATION
  Report Type: Spontaneous
  Country: US (occurrence: None)
  Receive Date: 20130318
  Receipt Date: 20130318
  Transmission Date: 20140127
  Serious: Yes (Other)
  Sender: FDA-Public Use
  Company Number: THQ2013A01827

PATIENT
  Age: 47 Year
  Sex: Male

DRUGS (8)
  1. LANSOPRAZOLE (LANSOPRAZOLE) [Suspect]
     Indication: PRODUCT USED FOR UNKNOWN INDICATION
     Dates: start: 20130124
  2. BISOPROLOL [Concomitant]
  3. SIMVASTATIN [Concomitant]
  4. CLOPIDOGREL [Concomitant]
  5. CLINDAMYCIN PHOSPHATE [Concomitant]
  6. ERTHYROMYCIN [Concomitant]
  7. CETIRIZINE [Concomitant]
  8. HYDROCORTISONE [Concomitant]

REACTIONS (1)
  - Eczema [None]
